FAERS Safety Report 7397924-2 (Version None)
Quarter: 2011Q2

REPORT INFORMATION
  Report Type: 
  Country: None (occurrence: None)
  Receive Date: 20110406
  Receipt Date: 20110328
  Transmission Date: 20111010
  Serious: Yes (Other)
  Sender: FDA-Public Use
  Company Number: US-CEPHALON-2011001474

PATIENT
  Sex: Male
  Weight: 82 kg

DRUGS (8)
  1. NUVIGIL [Suspect]
     Route: 048
  2. OMNARIS [Concomitant]
     Dates: start: 20080101
  3. ALLEGRA [Concomitant]
     Dates: start: 20060101
  4. FLUDROCORTISONE [Concomitant]
     Dates: start: 20060101
  5. SERTERALINE [Concomitant]
  6. LEVOTHYROXINE [Concomitant]
     Dates: start: 20090101
  7. TESTOSTERONE ENANTHATE [Concomitant]
     Dates: start: 20100101
  8. NUVIGIL [Suspect]
     Indication: SLEEP APNOEA SYNDROME
     Route: 048
     Dates: start: 20110201

REACTIONS (1)
  - CHOREA [None]
